FAERS Safety Report 8221353-2 (Version None)
Quarter: 2012Q1

REPORT INFORMATION
  Report Type: 
  Country: None (occurrence: None)
  Receive Date: 20120316
  Receipt Date: 20120302
  Transmission Date: 20120608
  Serious: Yes (Other)
  Sender: FDA-Public Use
  Company Number: JPI-P-020070

PATIENT
  Age: 35 Year
  Sex: Male
  Weight: 148.8 kg

DRUGS (2)
  1. XYREM [Suspect]
     Indication: NARCOLEPSY
     Dosage: 8;6.5 GM (4; 3.25 GM, 2 IN 1 D), ORAL
     Route: 048
     Dates: start: 20100611
  2. XYREM [Suspect]
     Indication: NARCOLEPSY
     Dosage: 8;6.5 GM (4; 3.25 GM, 2 IN 1 D), ORAL
     Route: 048
     Dates: start: 20110329

REACTIONS (1)
  - PNEUMONIA CHLAMYDIAL [None]
